FAERS Safety Report 24604207 (Version 1)
Quarter: 2024Q4

REPORT INFORMATION
  Report Type: Spontaneous
  Country: US (occurrence: US)
  Receive Date: 20241111
  Receipt Date: 20241111
  Transmission Date: 20250115
  Serious: Yes (Other)
  Sender: TEVA
  Company Number: US-TEVA-VS-3261509

PATIENT
  Sex: Female

DRUGS (1)
  1. TERIPARATIDE [Suspect]
     Active Substance: TERIPARATIDE
     Indication: Osteoporosis
     Dosage: FORM STRENGTH: 600-2.4MCG/ML
     Route: 065

REACTIONS (1)
  - Femur fracture [Recovering/Resolving]
